FAERS Safety Report 11828756 (Version 3)
Quarter: 2016Q1

REPORT INFORMATION
  Report Type: Spontaneous
  Country: JP (occurrence: JP)
  Receive Date: 20151211
  Receipt Date: 20160301
  Transmission Date: 20160525
  Serious: Yes (Death, Life-Threatening, Hospitalization, Other)
  Sender: FDA-Public Use
  Company Number: JP-BRISTOL-MYERS SQUIBB COMPANY-BMS-2015-079835

PATIENT
  Age: 79 Year
  Sex: Female
  Weight: 44 kg

DRUGS (12)
  1. ORENCIA [Suspect]
     Active Substance: ABATACEPT
     Indication: RHEUMATOID ARTHRITIS
     Dosage: 500 MG, Q4WK
     Route: 042
     Dates: start: 201103, end: 20151027
  2. METHOTREXATE [Concomitant]
     Active Substance: METHOTREXATE
     Indication: PRODUCT USED FOR UNKNOWN INDICATION
     Route: 048
  3. REBAMIPIDE [Concomitant]
     Active Substance: REBAMIPIDE
     Indication: PROPHYLAXIS
     Dosage: 200 MG, BID
     Route: 048
     Dates: start: 20151102
  4. PREDONINE [Concomitant]
     Active Substance: PREDNISOLONE\PREDNISOLONE ACETATE\PREDNISOLONE SODIUM SUCCINATE
     Indication: PRODUCT USED FOR UNKNOWN INDICATION
     Route: 048
  5. ZETIA [Concomitant]
     Active Substance: EZETIMIBE
     Indication: DYSLIPIDAEMIA
     Dosage: 10 MG, QD
     Route: 048
     Dates: start: 20051102
  6. EDIROL [Concomitant]
     Active Substance: ELDECALCITOL
     Indication: PROPHYLAXIS
     Dosage: 0.75 ?G, QD
     Route: 048
     Dates: start: 20151102
  7. PREDONINE [Concomitant]
     Active Substance: PREDNISOLONE\PREDNISOLONE ACETATE\PREDNISOLONE SODIUM SUCCINATE
     Indication: ADVERSE EVENT
     Dosage: 5 MG, QD
     Route: 048
  8. LOXOPROFEN [Concomitant]
     Active Substance: LOXOPROFEN
     Indication: ADVERSE EVENT
     Dosage: 120 MG, BID
     Route: 048
  9. ZOPICLONE [Concomitant]
     Active Substance: ZOPICLONE
     Indication: INSOMNIA
     Dosage: 7.5 MG, QD
     Route: 048
     Dates: start: 20151102
  10. BONALON [Concomitant]
     Active Substance: ALENDRONATE SODIUM
     Indication: PROPHYLAXIS
     Dosage: 35 MG, QWK
     Route: 048
     Dates: start: 20151102
  11. BACTRAMIN [Suspect]
     Active Substance: SULFAMETHOXAZOLE\TRIMETHOPRIM
     Indication: PROPHYLAXIS
     Dosage: 1 TAB, QD
     Route: 048
     Dates: end: 20151102
  12. KETOPROFEN. [Concomitant]
     Active Substance: KETOPROFEN
     Indication: ADVERSE EVENT
     Dosage: 40 MG, QD
     Route: 061

REACTIONS (5)
  - Respiratory failure [Unknown]
  - Septic shock [Fatal]
  - Cytopenia [Not Recovered/Not Resolved]
  - Disseminated intravascular coagulation [Unknown]
  - Pneumonia [Fatal]

NARRATIVE: CASE EVENT DATE: 20150929
